FAERS Safety Report 7531571-4 (Version None)
Quarter: 2011Q2

REPORT INFORMATION
  Report Type: 
  Country: None (occurrence: None)
  Receive Date: 20110601
  Receipt Date: 20110517
  Transmission Date: 20111010
  Serious: Yes (Other)
  Sender: FDA-Public Use
  Company Number: AT-005384

PATIENT
  Age: 69 Year
  Sex: Male
  Weight: 90 kg

DRUGS (1)
  1. DEGARELIX (FORMAGON) 80 MG [Suspect]
     Indication: PROSTATE CANCER
     Dosage: 80 MG, 1X/MONTH, SUBCUTANEOUS
     Route: 058
     Dates: start: 20100702, end: 20100802

REACTIONS (1)
  - INJECTION SITE RASH [None]
